FAERS Safety Report 5450065-3 (Version None)
Quarter: 2007Q3

REPORT INFORMATION
  Report Type: 
  Country: None (occurrence: None)
  Receive Date: 20070912
  Receipt Date: 20070904
  Transmission Date: 20080115
  Serious: Yes (Hospitalization)
  Sender: FDA-Public Use
  Company Number: CH-ELI_LILLY_AND_COMPANY-CH200707004958

PATIENT
  Age: 39 Year
  Sex: Male
  Weight: 83 kg

DRUGS (5)
  1. FLUCTINE [Suspect]
     Indication: AGORAPHOBIA
     Dosage: 40 MG, DAILY (1/D)
     Dates: start: 20040101
  2. CO-RENITEN [Concomitant]
     Indication: HYPERTENSION
     Route: 048
     Dates: start: 20020101
  3. CO-RENITEN [Concomitant]
     Dosage: 6.25 MG, DAILY (1/D)
     Route: 048
     Dates: start: 20020101
  4. TRASICOR [Concomitant]
     Indication: HYPERTENSION
     Dosage: 40 MG, DAILY (1/D)
     Dates: start: 20020101
  5. SIMVASTIN-MEPHA [Concomitant]
     Indication: HYPERCHOLESTEROLAEMIA
     Route: 048
     Dates: start: 20020101

REACTIONS (2)
  - SEBACEOUS GLAND DISORDER [None]
  - SUBCUTANEOUS ABSCESS [None]
